FAERS Safety Report 5505010-9 (Version None)
Quarter: 2007Q4

REPORT INFORMATION
  Report Type: 
  Country: None (occurrence: None)
  Receive Date: 20071031
  Receipt Date: 20071031
  Transmission Date: 20080405
  Serious: Yes (Hospitalization)
  Sender: FDA-Public Use
  Company Number: None

PATIENT
  Sex: Male
  Weight: 78 kg

DRUGS (4)
  1. RILUZOLE [Suspect]
     Indication: OBSESSIVE-COMPULSIVE DISORDER
     Dosage: 60 MG EVERY 12 HOURS 47
     Route: 048
     Dates: start: 20070901, end: 20071012
  2. CLOMIPRAMINE HCL [Concomitant]
  3. ESCITALOPRAM [Concomitant]
  4. QUETIAPINE FUMARATE [Concomitant]

REACTIONS (1)
  - PANCREATITIS [None]
